FAERS Safety Report 5031810-8 (Version None)
Quarter: 2006Q2

REPORT INFORMATION
  Report Type: 
  Country: None (occurrence: None)
  Receive Date: 20060621
  Receipt Date: 20060412
  Transmission Date: 20061013
  Serious: No
  Sender: FDA-Public Use
  Company Number: US-AMGEN-US176074

PATIENT
  Sex: Male
  Weight: 57.8 kg

DRUGS (16)
  1. ARANESP [Suspect]
     Indication: RENAL FAILURE CHRONIC
     Route: 058
     Dates: start: 20060131, end: 20060411
  2. EPOGEN [Suspect]
     Indication: RENAL FAILURE CHRONIC
     Dates: start: 20060425
  3. MEDICINALPRODUCT NOT SPECIFIED BY SENDER [Concomitant]
     Route: 042
  4. MEDICINALPRODUCT NOT SPECIFIED BY SENDER [Concomitant]
  5. MEDICINALPRODUCT NOT SPECIFIED BY SENDER [Concomitant]
  6. MEDICINALPRODUCT NOT SPECIFIED BY SENDER [Concomitant]
  7. MEDICINALPRODUCT NOT SPECIFIED BY SENDER [Concomitant]
  8. MEDICINALPRODUCT NOT SPECIFIED BY SENDER [Concomitant]
  9. MEDICINALPRODUCT NOT SPECIFIED BY SENDER [Concomitant]
  10. MEDICINALPRODUCT NOT SPECIFIED BY SENDER [Concomitant]
  11. MEDICINALPRODUCT NOT SPECIFIED BY SENDER [Concomitant]
  12. MEDICINALPRODUCT NOT SPECIFIED BY SENDER [Concomitant]
  13. MEDICINALPRODUCT NOT SPECIFIED BY SENDER [Concomitant]
  14. MEDICINALPRODUCT NOT SPECIFIED BY SENDER [Concomitant]
  15. MEDICINALPRODUCT NOT SPECIFIED BY SENDER [Concomitant]
  16. MEDICINALPRODUCT NOT SPECIFIED BY SENDER [Concomitant]

REACTIONS (2)
  - DIARRHOEA [None]
  - THERAPEUTIC RESPONSE DECREASED [None]
